FAERS Safety Report 8130462-8 (Version None)
Quarter: 2012Q1

REPORT INFORMATION
  Report Type: 
  Country: None (occurrence: None)
  Receive Date: 20120210
  Receipt Date: 20120131
  Transmission Date: 20120608
  Serious: Yes (Disabling)
  Sender: FDA-Public Use
  Company Number: NL-MERCK-1202NLD00004

PATIENT
  Age: 48 Year
  Sex: Male

DRUGS (4)
  1. LABETALOL HCL [Suspect]
     Route: 048
     Dates: start: 19750401, end: 20120112
  2. VALSARTAN [Suspect]
     Route: 048
     Dates: start: 19750401, end: 20120112
  3. HYDROCHLOROTHIAZIDE [Concomitant]
     Route: 048
  4. VYTORIN [Suspect]
     Route: 048
     Dates: start: 19750401, end: 20120112

REACTIONS (4)
  - PHANTOM PAIN [None]
  - SALIVARY GLAND ENLARGEMENT [None]
  - MALAISE [None]
  - MYALGIA [None]
